FAERS Safety Report 18116542 (Version 1)
Quarter: 2020Q3

REPORT INFORMATION
  Report Type: Spontaneous
  Country: US (occurrence: US)
  Receive Date: 20200805
  Receipt Date: 20200805
  Transmission Date: 20201103
  Serious: Yes (Disabling, Other)
  Sender: FDA-Public Use
  Company Number: US-FRESENIUS KABI-FK202007954

PATIENT
  Age: 33 Year
  Sex: Female

DRUGS (25)
  1. HYDROMORPHONE HCL [Suspect]
     Active Substance: HYDROMORPHONE HYDROCHLORIDE
     Indication: SMALL INTESTINAL OBSTRUCTION
  2. PARACETAMOL (MANUFACTURER UNKNOWN) [Suspect]
     Active Substance: ACETAMINOPHEN
     Indication: SMALL INTESTINAL OBSTRUCTION
  3. CEFEPIME [Suspect]
     Active Substance: CEFEPIME HYDROCHLORIDE
     Indication: ILEUS
     Dosage: UNKNOWN
     Route: 065
  4. METRONIDAZOLE. [Suspect]
     Active Substance: METRONIDAZOLE
     Indication: SMALL INTESTINAL OBSTRUCTION
  5. PHYTOMENADIONE [Suspect]
     Active Substance: PHYTONADIONE
     Indication: PRODUCT USED FOR UNKNOWN INDICATION
     Dosage: UNKNOWN
     Route: 065
  6. FAMOTIDINE INJECTION (MANUFACTURER UNKNOWN) [Suspect]
     Active Substance: FAMOTIDINE
     Indication: SMALL INTESTINAL OBSTRUCTION
  7. CALCIUM GLUCONATE (MANUFACTURER UNKNOWN) [Suspect]
     Active Substance: CALCIUM GLUCONATE
     Indication: ILEUS
     Dosage: UNKNOWN
     Route: 065
  8. CALCIUM GLUCONATE (MANUFACTURER UNKNOWN) [Suspect]
     Active Substance: CALCIUM GLUCONATE
     Indication: SMALL INTESTINAL OBSTRUCTION
  9. LORAZEPAM. [Suspect]
     Active Substance: LORAZEPAM
     Indication: PRODUCT USED FOR UNKNOWN INDICATION
     Dosage: UNKNOWN
     Route: 065
  10. PANTOPRAZOLE (MANUFACTURER UNKNOWN) [Suspect]
     Active Substance: PANTOPRAZOLE SODIUM
     Indication: PRODUCT USED FOR UNKNOWN INDICATION
     Dosage: UNKNOWN
     Route: 065
  11. CEFEPIME [Suspect]
     Active Substance: CEFEPIME HYDROCHLORIDE
     Indication: SMALL INTESTINAL OBSTRUCTION
  12. METHADONE [Suspect]
     Active Substance: METHADONE HYDROCHLORIDE
     Route: 065
  13. DIPHENHYDRAMINE INJECTION (MANUFACTURER UNKNOWN) [Suspect]
     Active Substance: DIPHENHYDRAMINE
     Indication: PRODUCT USED FOR UNKNOWN INDICATION
     Dosage: UNKNOWN
     Route: 065
  14. ONDANSETRON (MANUFACTURER UNKNOWN) [Suspect]
     Active Substance: ONDANSETRON
     Indication: SMALL INTESTINAL OBSTRUCTION
  15. HYDROMORPHONE HCL [Suspect]
     Active Substance: HYDROMORPHONE HYDROCHLORIDE
     Indication: ILEUS
     Dosage: UNKNOWN
     Route: 065
  16. ONDANSETRON (MANUFACTURER UNKNOWN) [Suspect]
     Active Substance: ONDANSETRON
     Indication: ILEUS
     Dosage: UNKNOWN
     Route: 065
  17. METRONIDAZOLE. [Suspect]
     Active Substance: METRONIDAZOLE
     Indication: ILEUS
     Dosage: UNKNOWN
     Route: 065
  18. FAMOTIDINE INJECTION (MANUFACTURER UNKNOWN) [Suspect]
     Active Substance: FAMOTIDINE
     Indication: ILEUS
     Dosage: UNKNOWN
     Route: 065
  19. KETOROLAC TROMETHAMINE INJECTION (MANUFACTURER UNKNOWN) [Suspect]
     Active Substance: KETOROLAC TROMETHAMINE
     Indication: ILEUS
     Dosage: UNKNOWN
     Route: 065
  20. KETOROLAC TROMETHAMINE INJECTION (MANUFACTURER UNKNOWN) [Suspect]
     Active Substance: KETOROLAC TROMETHAMINE
     Indication: SMALL INTESTINAL OBSTRUCTION
  21. METHADONE [Suspect]
     Active Substance: METHADONE HYDROCHLORIDE
     Indication: DRUG WITHDRAWAL MAINTENANCE THERAPY
     Route: 065
  22. QUETIAPINE. [Suspect]
     Active Substance: QUETIAPINE
     Indication: PRODUCT USED FOR UNKNOWN INDICATION
     Dosage: UNKNOWN
     Route: 065
  23. PARACETAMOL (MANUFACTURER UNKNOWN) [Suspect]
     Active Substance: ACETAMINOPHEN
     Indication: ILEUS
     Dosage: UNKNOWN
     Route: 065
  24. NALOXONE HYDROCHLORIDE/BUPRENORPHINE HYDROCHLORIDE [Suspect]
     Active Substance: BUPRENORPHINE HYDROCHLORIDE\NALOXONE HYDROCHLORIDE
     Indication: DRUG WITHDRAWAL MAINTENANCE THERAPY
     Dosage: UNKNOWN
     Route: 065
  25. IPRATROPIUM BROMIDE. [Suspect]
     Active Substance: IPRATROPIUM BROMIDE
     Indication: PRODUCT USED FOR UNKNOWN INDICATION
     Dosage: UNKNOWN
     Route: 065

REACTIONS (4)
  - Constipation [Recovered/Resolved]
  - Large intestine perforation [Recovered/Resolved]
  - Confusional state [Recovered/Resolved]
  - Colitis ischaemic [Recovered/Resolved]
